FAERS Safety Report 21691934 (Version 6)
Quarter: 2023Q1

REPORT INFORMATION
  Report Type: Spontaneous
  Country: FI (occurrence: FI)
  Receive Date: 20221207
  Receipt Date: 20230203
  Transmission Date: 20230418
  Serious: Yes (Death)
  Sender: FDA-Public Use
  Company Number: None

PATIENT
  Age: 1 Year
  Sex: Male

DRUGS (3)
  1. M-M-RVAXPRO [Suspect]
     Active Substance: MEASLES VIRUS STRAIN ENDERS^ ATTENUATED EDMONSTON LIVE ANTIGEN\MUMPS VIRUS STRAIN B LEVEL JERYL LYNN
     Indication: Prophylaxis
     Route: 030
     Dates: start: 20220523, end: 20220523
  2. STERILE DILUENT (WATER) [Suspect]
     Active Substance: WATER
     Dosage: UNK
     Dates: start: 20220523
  3. PENTAVAC [Concomitant]
     Active Substance: DIPHTHERIA AND TETANUS TOXOIDS AND ACELLULAR PERTUSSIS ADSORBED, INACTIVATED POLIOVIRUS AND HAEMOPHI
     Indication: Prophylaxis
     Dosage: 1,DF,X1, POWDER AND SUSPENSION FOR SUSPENSION FOR INJECTION
     Route: 030
     Dates: start: 20220523, end: 20220523

REACTIONS (15)
  - Disseminated intravascular coagulation [Fatal]
  - Protein-losing gastroenteropathy [Fatal]
  - Anaemia [Fatal]
  - Oesophageal haemorrhage [Fatal]
  - Immunodeficiency [Fatal]
  - Respiratory failure [Fatal]
  - Lymphopenia [Fatal]
  - Transmission of an infectious agent via product [Fatal]
  - Pneumonia measles [Fatal]
  - Hepatic enzyme increased [Fatal]
  - Haemophagocytic lymphohistiocytosis [Fatal]
  - Pneumothorax [Fatal]
  - Measles post vaccine [Fatal]
  - Diarrhoea haemorrhagic [Fatal]
  - Stomatitis [Fatal]

NARRATIVE: CASE EVENT DATE: 20220523
